FAERS Safety Report 10398443 (Version 1)
Quarter: 2014Q3

REPORT INFORMATION
  Report Type: Spontaneous
  Country: US (occurrence: None)
  Receive Date: 20140818
  Receipt Date: 20140818
  Transmission Date: 20150326
  Serious: Yes (Hospitalization)
  Sender: FDA-Public Use
  Company Number: None

PATIENT
  Age: 20 Year
  Sex: Female
  Weight: 57 kg

DRUGS (1)
  1. NIMESULIDE [Suspect]
     Active Substance: NIMESULIDE
     Indication: ANTIPYRESIS
     Route: 048

REACTIONS (2)
  - Gastrointestinal haemorrhage [None]
  - Renal failure [None]

NARRATIVE: CASE EVENT DATE: 20140817
